FAERS Safety Report 9654867 (Version 2)
Quarter: 2016Q4

REPORT INFORMATION
  Report Type: Report from Study
  Country: BE (occurrence: BE)
  Receive Date: 20131029
  Receipt Date: 20161028
  Transmission Date: 20170207
  Serious: Yes (Death, Hospitalization)
  Sender: FDA-Public Use
  Company Number: BE-BAXTER-2013BAX041310

PATIENT
  Age: 79 Year
  Sex: Male

DRUGS (18)
  1. METHYLPREDNISOLONE. [Suspect]
     Active Substance: METHYLPREDNISOLONE
     Indication: DIFFUSE LARGE B-CELL LYMPHOMA
     Dosage: ALSO REPORTED AS 105 MG ONCE A DAY
     Route: 042
     Dates: start: 20130719, end: 20130719
  2. ACICLOVIR [Concomitant]
     Active Substance: ACYCLOVIR
     Indication: PROPHYLACTIC CHEMOTHERAPY
     Dosage: PROPHYLAXIS
     Route: 048
     Dates: start: 20130719, end: 20130819
  3. METHYLPREDNISOLONE. [Suspect]
     Active Substance: METHYLPREDNISOLONE
     Route: 048
     Dates: start: 20130726
  4. ASPIRIN. [Concomitant]
     Active Substance: ASPIRIN
     Indication: PROPHYLACTIC CHEMOTHERAPY
     Dosage: PROPHYLAXIS
     Route: 065
     Dates: start: 20130719, end: 20130819
  5. METHOTREXATE. [Concomitant]
     Active Substance: METHOTREXATE
     Indication: PROPHYLAXIS
     Dosage: PROPHYLAXIS LOCAL STANDARD PRACTICE FOR PATIENTS WITH HIGH RISK OF CENTRAL NERVOUS SYSTEM INVOLVEMEN
     Route: 019
     Dates: start: 20130723, end: 20130723
  6. EMCONCOR [Concomitant]
     Active Substance: BISOPROLOL FUMARATE
     Indication: PROPHYLACTIC CHEMOTHERAPY
     Dosage: PROPHYLAXIS
     Route: 048
     Dates: start: 20130819
  7. TOTALIP [Concomitant]
     Active Substance: ATORVASTATIN
     Indication: PRODUCT USED FOR UNKNOWN INDICATION
     Route: 065
     Dates: end: 20130819
  8. DOXORUBICIN [Suspect]
     Active Substance: DOXORUBICIN
     Indication: DIFFUSE LARGE B-CELL LYMPHOMA
     Dosage: LAST DOSE PRIOR TO SAE
     Route: 042
     Dates: start: 20130719, end: 20130819
  9. VINCRISTINE [Suspect]
     Active Substance: VINCRISTINE
     Indication: DIFFUSE LARGE B-CELL LYMPHOMA
     Dosage: R-CHOP 21 REGIMEN
     Route: 065
     Dates: end: 20130819
  10. ENDOXAN 1000 MG - POUDRE POUR SOLUTION INJECTABLE [Suspect]
     Active Substance: CYCLOPHOSPHAMIDE
     Indication: DIFFUSE LARGE B-CELL LYMPHOMA
     Route: 042
     Dates: start: 20130719, end: 20130819
  11. CLEXANE [Concomitant]
     Active Substance: ENOXAPARIN SODIUM
     Indication: PROPHYLACTIC CHEMOTHERAPY
     Dosage: 60 MILLION UNITS PER METER, PROPHYLAXIS
     Route: 058
     Dates: start: 20130719, end: 20130819
  12. NEULASTA [Concomitant]
     Active Substance: PEGFILGRASTIM
     Indication: PROPHYLACTIC CHEMOTHERAPY
     Dosage: CHEMOTHERAPY PREVENTION
     Route: 058
     Dates: start: 20130723, end: 20130723
  13. PANTOMED [Concomitant]
     Active Substance: DEXPANTHENOL
     Indication: PROPHYLACTIC CHEMOTHERAPY
     Dosage: PROPHYLAXIS
     Route: 048
     Dates: start: 20130719, end: 20130819
  14. BACTRIM [Concomitant]
     Active Substance: SULFAMETHOXAZOLE\TRIMETHOPRIM
     Indication: PROPHYLACTIC CHEMOTHERAPY
     Dosage: PROPHYLAXIS
     Route: 048
     Dates: start: 20130719, end: 20130819
  15. BETAHISTINE [Concomitant]
     Active Substance: BETAHISTINE
     Indication: PRODUCT USED FOR UNKNOWN INDICATION
     Route: 065
     Dates: end: 20130819
  16. METHYLPREDNISOLONE. [Suspect]
     Active Substance: METHYLPREDNISOLONE
     Route: 048
     Dates: start: 20130720, end: 20130723
  17. RITUXIMAB [Suspect]
     Active Substance: RITUXIMAB
     Indication: DIFFUSE LARGE B-CELL LYMPHOMA
     Dosage: AS PER PROTOCOL, LAST DOSE PRIOR TO SAE, UNIT DOSE: 640 MG
     Route: 042
     Dates: start: 20130719, end: 20130719
  18. BURINEX [Concomitant]
     Active Substance: BUMETANIDE
     Indication: PRODUCT USED FOR UNKNOWN INDICATION
     Route: 048
     Dates: start: 20130714, end: 20130819

REACTIONS (4)
  - Pseudomonal sepsis [Fatal]
  - Septic shock [Fatal]
  - Febrile neutropenia [Not Recovered/Not Resolved]
  - Enterococcal sepsis [Fatal]

NARRATIVE: CASE EVENT DATE: 20130728
